FAERS Safety Report 10966977 (Version 4)
Quarter: 2015Q2

REPORT INFORMATION
  Report Type: Spontaneous
  Country: DE (occurrence: DE)
  Receive Date: 20150330
  Receipt Date: 20150505
  Transmission Date: 20150821
  Serious: Yes (Hospitalization)
  Sender: FDA-Public Use
  Company Number: DE-TAKEDA-2015TUS003816

PATIENT
  Age: 25 Year
  Sex: Female
  Weight: 65 kg

DRUGS (6)
  1. FERINJECT [Concomitant]
     Active Substance: FERRIC CARBOXYMALTOSE
     Indication: IRON DEFICIENCY ANAEMIA
     Dosage: 1 G, UNK
     Route: 065
     Dates: start: 20150316, end: 20150316
  2. ENTYVIO [Suspect]
     Active Substance: VEDOLIZUMAB
     Indication: COLITIS ULCERATIVE
     Dosage: 300 MG, UNK
     Route: 042
     Dates: start: 20150114, end: 20150225
  3. CHOLECALCIFEROL [Concomitant]
     Active Substance: CHOLECALCIFEROL
     Indication: VITAMIN D DEFICIENCY
     Dosage: 2000 IU, 1/WEEK
     Route: 065
     Dates: start: 20150225
  4. BUDESONIDE. [Concomitant]
     Active Substance: BUDESONIDE
     Indication: COLITIS ULCERATIVE
     Dosage: 9 MG, QD
     Route: 065
  5. TRANSFUSION OF CONCENTRATED RED CELLS [Concomitant]
     Indication: IRON DEFICIENCY ANAEMIA
     Dosage: UNK
     Route: 065
     Dates: start: 20150323, end: 20150323
  6. MESALAZINE [Concomitant]
     Active Substance: MESALAMINE
     Indication: COLITIS ULCERATIVE
     Route: 065

REACTIONS (3)
  - Noninfective sialoadenitis [Recovering/Resolving]
  - Parotid abscess [Recovering/Resolving]
  - Nasopharyngitis [Unknown]

NARRATIVE: CASE EVENT DATE: 20150307
